FAERS Safety Report 4721960-5 (Version None)
Quarter: 2005Q3

REPORT INFORMATION
  Report Type: 
  Country: None (occurrence: None)
  Receive Date: 20050719
  Receipt Date: 20050707
  Transmission Date: 20060218
  Serious: Yes (Hospitalization)
  Sender: FDA-Public Use
  Company Number: GBWYE219822NOV04

PATIENT
  Sex: Female

DRUGS (4)
  1. GEMTUZUMAB OZOGAMICIN (GEMTUZUMAB OZOGAMICIN, INJECTION) [Suspect]
     Indication: ACUTE MYELOID LEUKAEMIA
  2. AMSACRINE (AMSACRINE, , 0) [Suspect]
     Indication: ACUTE MYELOID LEUKAEMIA
     Dosage: 100 MG/M2 DAILY BY 1 HOUR INFUSION; INFUSION
  3. CYTARABINE [Suspect]
     Indication: ACUTE MYELOID LEUKAEMIA
     Dosage: 200 MG/M2 DAILY BY CONTINUOUS INFUSION, DAYS 1-5;
  4. ETOPOSIDE (ETOPOSIDE, , 0) [Suspect]
     Indication: ACUTE MYELOID LEUKAEMIA
     Dosage: 100 MG/M2 DAILY BY 1 HOUR INFUSION, DAYS 1-5; INFUSION

REACTIONS (6)
  - DIALYSIS [None]
  - FUNGAL INFECTION [None]
  - KLEBSIELLA SEPSIS [None]
  - NEUTROPENIC SEPSIS [None]
  - RENAL FAILURE [None]
  - SINUSITIS [None]
